FAERS Safety Report 11886823 (Version 1)
Quarter: 2016Q1

REPORT INFORMATION
  Report Type: Spontaneous
  Country: US (occurrence: US)
  Receive Date: 20160104
  Receipt Date: 20160104
  Transmission Date: 20160526
  Serious: No
  Sender: FDA-Public Use
  Company Number: US-BAYER-2015-497427

PATIENT
  Age: 82 Year
  Sex: Female
  Weight: 62.13 kg

DRUGS (2)
  1. VITAMIN D [Concomitant]
     Active Substance: CHOLECALCIFEROL
  2. MIRALAX [Suspect]
     Active Substance: POLYETHYLENE GLYCOL 3350
     Indication: CONSTIPATION
     Dosage: 1 DF, DAILY OR EVERY OTHER DAY
     Route: 048
     Dates: start: 201506

REACTIONS (2)
  - Product use issue [None]
  - Product quality issue [None]

NARRATIVE: CASE EVENT DATE: 201506
